FAERS Safety Report 7990289-4 (Version None)
Quarter: 2011Q4

REPORT INFORMATION
  Report Type: 
  Country: None (occurrence: None)
  Receive Date: 20111219
  Receipt Date: 20110203
  Transmission Date: 20120403
  Serious: No
  Sender: FDA-Public Use
  Company Number: US-ASTRAZENECA-2011SE06144

PATIENT
  Age: 71 Year
  Sex: Female
  Weight: 98 kg

DRUGS (4)
  1. DIOVAN [Concomitant]
  2. CRESTOR [Suspect]
     Indication: BLOOD CHOLESTEROL
     Route: 048
     Dates: start: 20100101
  3. COUMADIN [Concomitant]
  4. CRESTOR [Suspect]
     Route: 048

REACTIONS (5)
  - DIABETES MELLITUS [None]
  - NAUSEA [None]
  - DYSPEPSIA [None]
  - MYALGIA [None]
  - INTERNATIONAL NORMALISED RATIO INCREASED [None]
